FAERS Safety Report 16226710 (Version 1)
Quarter: 2019Q2

REPORT INFORMATION
  Report Type: Spontaneous
  Country: US (occurrence: US)
  Receive Date: 20190423
  Receipt Date: 20190423
  Transmission Date: 20190711
  Serious: No
  Sender: FDA-Public Use
  Company Number: US-009507513-1904USA009536

PATIENT
  Age: 36 Year
  Sex: Female

DRUGS (1)
  1. NEXPLANON [Suspect]
     Active Substance: ETONOGESTREL
     Dosage: 68 MG, 1 ROD/EVERY 3 YEARS, LEFT ARM
     Route: 059
     Dates: start: 2016

REACTIONS (3)
  - Device deployment issue [Not Recovered/Not Resolved]
  - Complication associated with device [Not Recovered/Not Resolved]
  - Complication associated with device [Not Recovered/Not Resolved]

NARRATIVE: CASE EVENT DATE: 201807
